FAERS Safety Report 4910874-3 (Version None)
Quarter: 2006Q1

REPORT INFORMATION
  Report Type: 
  Country: None (occurrence: None)
  Receive Date: 20060208
  Receipt Date: 20060208
  Transmission Date: 20060701
  Serious: Yes (Hospitalization)
  Sender: FDA-Public Use
  Company Number: None

PATIENT
  Sex: Male
  Weight: 93.8946 kg

DRUGS (13)
  1. FUROSEMIDE [Suspect]
     Indication: CARDIAC FAILURE CONGESTIVE
     Dosage: 40 MG DAILY
  2. METOPROLOL SUCCINATE [Suspect]
     Indication: CORONARY ARTERY DISEASE
     Dosage: 12.5 MG QHS
  3. ALBUTEROL/IPRATROPIUM INHL [Concomitant]
  4. AMIODARONE HCL [Concomitant]
  5. FINASTERIDE [Concomitant]
  6. FLUNISOLIDE [Concomitant]
  7. FUROSEMIDE [Concomitant]
  8. HEPARIN SODIUM [Concomitant]
  9. IPRATROPIUM BROMIDE [Concomitant]
  10. ISOSORBIDE MONONITRATE [Concomitant]
  11. METOPROLOL TARTRATE [Concomitant]
  12. SODIUM CHLORIDE [Concomitant]
  13. SULFAMETHOXAZOLE 400/TRIMETHOPRIM [Concomitant]

REACTIONS (1)
  - DIZZINESS POSTURAL [None]
